FAERS Safety Report 14825728 (Version 2)
Quarter: 2018Q2

REPORT INFORMATION
  Report Type: Report from Study
  Country: NL (occurrence: NL)
  Receive Date: 20180430
  Receipt Date: 20180523
  Transmission Date: 20180711
  Serious: Yes (Hospitalization)
  Sender: FDA-Public Use
  Company Number: NL-ROCHE-2111105

PATIENT
  Age: 61 Year
  Sex: Female

DRUGS (5)
  1. CAPECITABINE. [Suspect]
     Active Substance: CAPECITABINE
     Indication: COLORECTAL CANCER
     Dosage: ON 17/FEB/2016, SHE RECEIVED SUBSEQUENT DOSE OF CAPECITABINE.
     Route: 065
     Dates: start: 20151112, end: 20160302
  2. NITROFURANTOIN. [Concomitant]
     Active Substance: NITROFURANTOIN
  3. BEVACIZUMAB. [Suspect]
     Active Substance: BEVACIZUMAB
     Indication: COLORECTAL CANCER
     Route: 042
     Dates: start: 20151112, end: 20151203
  4. OXALIPLATIN. [Suspect]
     Active Substance: OXALIPLATIN
     Indication: COLORECTAL CANCER
     Dosage: ON 04/FEB/2016, SHE RECEIVED SUBSEQUENT DOSE OF OXALIPLATIN.
     Route: 065
     Dates: start: 20151112, end: 20160302
  5. PREGABALINE [Concomitant]
     Active Substance: PREGABALIN

REACTIONS (4)
  - Pyrexia [Unknown]
  - Cough [Recovering/Resolving]
  - Urosepsis [Recovered/Resolved]
  - Pneumonia [Recovered/Resolved]

NARRATIVE: CASE EVENT DATE: 20160224
